FAERS Safety Report 20899689 (Version 2)
Quarter: 2022Q2

REPORT INFORMATION
  Report Type: Spontaneous
  Country: US (occurrence: US)
  Receive Date: 20220601
  Receipt Date: 20220614
  Transmission Date: 20220721
  Serious: Yes (Other)
  Sender: FDA-Public Use
  Company Number: US-Calliditas-2022CAL00090

PATIENT
  Age: 33 Year
  Sex: Male

DRUGS (1)
  1. TARPEYO [Suspect]
     Active Substance: BUDESONIDE
     Indication: IgA nephropathy
     Dosage: 16 MG (4 MG CAPSULES) DAILY
     Route: 050
     Dates: start: 20220506

REACTIONS (8)
  - Peripheral swelling [Unknown]
  - Contusion [Unknown]
  - Dyspnoea [Unknown]
  - Oedema [Unknown]
  - Presyncope [Unknown]
  - Weight increased [Unknown]
  - Intentional dose omission [Unknown]
  - Intentional underdose [Unknown]

NARRATIVE: CASE EVENT DATE: 20220601
